FAERS Safety Report 6720386-2 (Version None)
Quarter: 2010Q2

REPORT INFORMATION
  Report Type: 
  Country: None (occurrence: None)
  Receive Date: 20100511
  Receipt Date: 20100428
  Transmission Date: 20101027
  Serious: Yes (Death)
  Sender: FDA-Public Use
  Company Number: JP-PFIZER INC-2010053702

PATIENT
  Age: 69 Year
  Sex: Female

DRUGS (13)
  1. ADRIACIN [Suspect]
     Indication: NON-HODGKIN'S LYMPHOMA
     Dosage: 75 MG, UNK
     Dates: start: 20081121, end: 20081121
  2. ONCOVIN [Concomitant]
     Dosage: 2 MG, UNK
     Dates: start: 20081121, end: 20081121
  3. ENDOXAN [Concomitant]
     Dosage: 1130 MG, UNK
     Dates: start: 20081121, end: 20081121
  4. PREDONINE [Concomitant]
     Dosage: 60 MG, UNK
     Dates: start: 20081121, end: 20081121
  5. PREDONINE [Concomitant]
     Dosage: 20 MG, 2X/DAY
     Route: 048
     Dates: start: 20081122, end: 20081125
  6. FAMOTIDINE [Concomitant]
     Dosage: 20 MG, 2X/DAY
     Route: 048
     Dates: start: 20081122, end: 20081128
  7. COTRIM [Concomitant]
     Dosage: 1 DF, 1X/DAY
     Route: 048
     Dates: start: 20081122, end: 20081203
  8. CYANOCOBALAMIN [Concomitant]
     Dosage: 0.5 MG, 3X/DAY
     Route: 048
     Dates: start: 20081122, end: 20081203
  9. MAGNESIUM OXIDE [Concomitant]
     Dosage: 0.67 G, 3X/DAY
     Route: 048
     Dates: start: 20081122, end: 20081203
  10. ASPIRIN [Concomitant]
     Dosage: 100 MG, 1X/DAY
     Route: 048
  11. SUNRYTHM [Concomitant]
     Dosage: 50 MG, 3X/DAY
     Route: 048
  12. MAINTATE [Concomitant]
     Dosage: 2.5 MG, 1X/DAY
     Route: 048
     Dates: start: 20080630, end: 20081203
  13. KYTRIL [Concomitant]
     Dosage: 3 MG, 1X/DAY
     Route: 048
     Dates: start: 20081121, end: 20081121

REACTIONS (1)
  - CARDIAC FAILURE ACUTE [None]
